FAERS Safety Report 24666309 (Version 1)
Quarter: 2024Q4

REPORT INFORMATION
  Report Type: Spontaneous
  Country: US (occurrence: US)
  Receive Date: 20241126
  Receipt Date: 20241126
  Transmission Date: 20250115
  Serious: No
  Sender: BOEHRINGER INGELHEIM
  Company Number: US-Komodo Health-a23aa000004OKPtAAO

PATIENT
  Sex: Male

DRUGS (1)
  1. MIRAPEX [Suspect]
     Active Substance: PRAMIPEXOLE DIHYDROCHLORIDE
     Indication: Restless legs syndrome
     Dosage: 4 - .25 MG

REACTIONS (5)
  - Gambling disorder [Unknown]
  - Anxiety [Unknown]
  - Off label use [Unknown]
  - Self-destructive behaviour [Unknown]
  - Emotional distress [Unknown]
